FAERS Safety Report 9674454 (Version 3)
Quarter: 2013Q4

REPORT INFORMATION
  Report Type: Report from Study
  Country: BR (occurrence: BR)
  Receive Date: 20131107
  Receipt Date: 20131115
  Transmission Date: 20140711
  Serious: Yes (Other)
  Sender: FDA-Public Use
  Company Number: BR-AMGEN-BRACT2011009428

PATIENT
  Age: 45 Year
  Sex: Male
  Weight: 75 kg

DRUGS (3)
  1. ETANERCEPT [Suspect]
     Indication: ANKYLOSING SPONDYLITIS
     Dosage: 25 MG, 2X/WEEK
     Route: 058
     Dates: start: 2009, end: 201310
  2. ETANERCEPT [Suspect]
     Dosage: 50 MG, QWK
     Route: 058
     Dates: start: 201310
  3. VOLTAREN                           /00372301/ [Concomitant]
     Indication: PAIN
     Dosage: WHEN FEELING PAIN

REACTIONS (9)
  - Headache [Unknown]
  - Abdominal discomfort [Unknown]
  - Blood cholesterol abnormal [Unknown]
  - Rhinitis allergic [Unknown]
  - Anorectal discomfort [Unknown]
  - Product quality issue [Unknown]
  - Infection [Unknown]
  - Injection site discomfort [Unknown]
  - Injection site pain [Unknown]
